FAERS Safety Report 8933681 (Version 1)
Quarter: 2012Q4

REPORT INFORMATION
  Report Type: 
  Country: IT (occurrence: FR)
  Receive Date: 20121128
  Receipt Date: 20121128
  Transmission Date: 20130627
  Serious: Yes (Hospitalization)
  Sender: FDA-Public Use
  Company Number: FR-FRI-1000040638

PATIENT
  Age: 66 None
  Sex: Male

DRUGS (10)
  1. NEBIVOLOL [Suspect]
     Route: 048
     Dates: end: 20121012
  2. INEXIUM [Suspect]
     Indication: GASTRITIS
     Route: 048
  3. EUPRESSYL [Suspect]
     Route: 048
  4. LOXEN [Suspect]
     Route: 048
  5. KEPPRA [Concomitant]
     Indication: EPILEPSY
     Route: 048
     Dates: start: 201208
  6. CELLCEPT [Concomitant]
     Dates: start: 20120727
  7. NEORAL [Concomitant]
  8. AMLODIPINE [Concomitant]
     Route: 048
     Dates: start: 20121012
  9. PARACETAMOL [Concomitant]
     Route: 048
  10. LASILIX [Concomitant]
     Indication: PULMONARY OEDEMA
     Dosage: 240 mg
     Route: 048
     Dates: start: 201208

REACTIONS (2)
  - Tubulointerstitial nephritis [Recovering/Resolving]
  - Renal failure acute [Recovering/Resolving]
